FAERS Safety Report 7369849-X (Version None)
Quarter: 2011Q1

REPORT INFORMATION
  Report Type: 
  Country: None (occurrence: None)
  Receive Date: 20110323
  Receipt Date: 20110310
  Transmission Date: 20110831
  Serious: Yes (Hospitalization, Other)
  Sender: FDA-Public Use
  Company Number: US-BAYER-201035927NA

PATIENT
  Sex: Female

DRUGS (5)
  1. LEXAPRO [Concomitant]
     Dosage: 20 MG, QD
  2. YASMIN [Suspect]
     Indication: MENORRHAGIA
     Route: 048
     Dates: start: 20041101, end: 20050601
  3. WARFARIN [Concomitant]
     Dosage: UNK
     Dates: start: 20050601
  4. AMBIEN [Concomitant]
     Dosage: 10 MG, PRN
  5. YASMIN [Suspect]
     Indication: MENSTRUATION IRREGULAR
     Route: 048
     Dates: start: 20040801, end: 20040101

REACTIONS (1)
  - PULMONARY EMBOLISM [None]
